FAERS Safety Report 8615202-8 (Version None)
Quarter: 2012Q3

REPORT INFORMATION
  Report Type: 
  Country: None (occurrence: None)
  Receive Date: 20120823
  Receipt Date: 20120815
  Transmission Date: 20120928
  Serious: Yes (Other)
  Sender: FDA-Public Use
  Company Number: US-ABBOTT-12P-163-0969492-00

PATIENT
  Age: 56 Year
  Sex: Male

DRUGS (2)
  1. UNKNOWN LIST OF MEDICATIONS [Concomitant]
     Indication: PRODUCT USED FOR UNKNOWN INDICATION
  2. HUMIRA [Suspect]
     Indication: ANKYLOSING SPONDYLITIS
     Dates: start: 20120616

REACTIONS (7)
  - SYNOVIAL CYST [None]
  - PAIN [None]
  - DIZZINESS [None]
  - WRONG TECHNIQUE IN DRUG USAGE PROCESS [None]
  - MALAISE [None]
  - PARAESTHESIA [None]
  - INJECTION SITE HAEMORRHAGE [None]
